FAERS Safety Report 8707415 (Version 3)
Quarter: 2013Q2

REPORT INFORMATION
  Report Type: Spontaneous
  Country: US (occurrence: US)
  Receive Date: 20120803
  Receipt Date: 20130529
  Transmission Date: 20140414
  Serious: Yes (Other)
  Sender: FDA-Public Use
  Company Number: US-ASTRAZENECA-2012SE53106

PATIENT
  Age: 50 Year
  Sex: Female

DRUGS (2)
  1. SEROQUEL XR [Suspect]
     Route: 048
  2. SEROQUEL XR [Suspect]
     Route: 048

REACTIONS (6)
  - Convulsion [Unknown]
  - Insomnia [Unknown]
  - Bipolar disorder [Unknown]
  - Drug withdrawal syndrome [Unknown]
  - Intentional drug misuse [Unknown]
  - Drug dose omission [Unknown]
